FAERS Safety Report 4645770-2 (Version None)
Quarter: 2005Q2

REPORT INFORMATION
  Report Type: 
  Country: None (occurrence: None)
  Receive Date: 20050425
  Receipt Date: 20050411
  Transmission Date: 20051028
  Serious: Yes (Congenital Anomaly)
  Sender: FDA-Public Use
  Company Number: 2005047687

PATIENT
  Sex: 0

DRUGS (10)
  1. DIFLUCAN [Suspect]
     Indication: FUNGAL INFECTION
     Dosage: 450 MG (DAILY)
     Dates: start: 19991109, end: 19991118
  2. PREDNISONE [Suspect]
     Indication: NASOPHARYNGITIS
     Dosage: 20 MG DAILY
     Dates: start: 19991126
  3. AMOXICILLIN [Suspect]
     Indication: ILL-DEFINED DISORDER
     Dosage: 1500 MG (500 MG, TID)
     Dates: start: 20000106, end: 20000115
  4. BACTRIM [Suspect]
     Indication: ILL-DEFINED DISORDER
     Dosage: 1000 MG (500 MG, BID)
     Dates: start: 19991101
  5. SALMETEROL XINAFOATE (SALMETEROL XINAFOATE) [Suspect]
     Indication: ILL-DEFINED DISORDER
     Dosage: 2 PUFFS, TWICE DAILY, INHALATION
     Route: 055
  6. FLUTICASONE PROPIONATE [Suspect]
     Indication: ILL-DEFINED DISORDER
     Dosage: 2 PUFFS, ONCE DAILY, INHALATION
     Route: 055
  7. SALBUTAMOL (SALBUTAMOL) [Suspect]
     Indication: ILL-DEFINED DISORDER
     Dosage: AS NEEDED
  8. LORATADINE [Suspect]
     Indication: ILL-DEFINED DISORDER
     Dosage: AS NEEDED
  9. LITHIUM CARBONATE [Suspect]
     Indication: ILL-DEFINED DISORDER
     Dosage: 600 MG (DAILY)
     Dates: start: 19991210, end: 19991214
  10. CLORAZEPATE DIPOTASSIUM [Suspect]
     Indication: ILL-DEFINED DISORDER
     Dosage: AS NEEDED
     Dates: start: 19991210, end: 19991214

REACTIONS (3)
  - ABORTION INDUCED [None]
  - DRUG EXPOSURE DURING PREGNANCY [None]
  - TRISOMY 21 [None]
